FAERS Safety Report 7245982-8 (Version None)
Quarter: 2011Q1

REPORT INFORMATION
  Report Type: 
  Country: None (occurrence: None)
  Receive Date: 20110126
  Receipt Date: 20061117
  Transmission Date: 20110831
  Serious: Yes (Other)
  Sender: FDA-Public Use
  Company Number: PHHY2006CL02751

PATIENT
  Sex: Male

DRUGS (1)
  1. TAREG [Suspect]

REACTIONS (1)
  - HYPERTENSIVE CRISIS [None]
